FAERS Safety Report 7207483-2 (Version None)
Quarter: 2011Q1

REPORT INFORMATION
  Report Type: 
  Country: None (occurrence: None)
  Receive Date: 20110103
  Receipt Date: 20101227
  Transmission Date: 20110831
  Serious: Yes (Life-Threatening)
  Sender: FDA-Public Use
  Company Number: TR-ROXANE LABORATORIES, INC.-2010-RO-01724RO

PATIENT
  Age: 1 Year
  Sex: Female

DRUGS (3)
  1. ONDANSETRON [Suspect]
     Indication: PROPHYLAXIS OF NAUSEA AND VOMITING
     Route: 042
  2. MESNA [Suspect]
     Indication: NEUROBLASTOMA
  3. IFOSFAMIDE [Suspect]
     Indication: NEUROBLASTOMA

REACTIONS (3)
  - CARDIAC ARREST [None]
  - ANAPHYLACTIC REACTION [None]
  - APNOEA [None]
